FAERS Safety Report 24303066 (Version 3)
Quarter: 2024Q4

REPORT INFORMATION
  Report Type: Report from Study
  Country: US (occurrence: US)
  Receive Date: 20240910
  Receipt Date: 20241230
  Transmission Date: 20250115
  Serious: No
  Sender: SUNOVION
  Company Number: US-SUMITOMO PHARMA SWITZERLAND GMBH-2024SPA001337

PATIENT

DRUGS (2)
  1. ORGOVYX [Suspect]
     Active Substance: RELUGOLIX
     Indication: Prostate cancer
     Dosage: 120 MG, QD
     Route: 048
     Dates: start: 20240524
  2. XTANDI [Concomitant]
     Active Substance: ENZALUTAMIDE
     Dosage: UNK
     Route: 065

REACTIONS (12)
  - Burning sensation [Unknown]
  - Chest pain [Unknown]
  - Nervousness [Unknown]
  - Pain [Unknown]
  - Ageusia [Unknown]
  - Axillary pain [Unknown]
  - Back pain [Unknown]
  - Balance disorder [Unknown]
  - Dizziness [Unknown]
  - Hot flush [Unknown]
  - Asthenia [Unknown]
  - Incorrect dose administered [Unknown]
